FAERS Safety Report 15505093 (Version 1)
Quarter: 2018Q4

REPORT INFORMATION
  Report Type: Spontaneous
  Country: US (occurrence: US)
  Receive Date: 20181010
  Receipt Date: 20181010
  Transmission Date: 20190205
  Serious: Yes (Hospitalization)
  Sender: FDA-Public Use
  Company Number: None

PATIENT
  Age: 68 Year
  Sex: Female

DRUGS (13)
  1. CALCIUM [Concomitant]
     Active Substance: CALCIUM
  2. VITAMIN D3 [Concomitant]
     Active Substance: CHOLECALCIFEROL
  3. ALLOPURINOL. [Concomitant]
     Active Substance: ALLOPURINOL
  4. TURMERIC [Concomitant]
     Active Substance: HERBALS\TURMERIC
  5. METHOTREXATE. [Concomitant]
     Active Substance: METHOTREXATE
  6. LISINOPRIL. [Concomitant]
     Active Substance: LISINOPRIL
  7. AMLODIPINE [Concomitant]
     Active Substance: AMLODIPINE BESYLATE
  8. CITRULLINE [Concomitant]
     Active Substance: CITRULLINE
  9. XELJANZ XR [Suspect]
     Active Substance: TOFACITINIB CITRATE
     Indication: RHEUMATOID ARTHRITIS
     Route: 048
     Dates: start: 20180202
  10. FOLIC ACID. [Concomitant]
     Active Substance: FOLIC ACID
  11. METOPROLOL TARTRATE. [Concomitant]
     Active Substance: METOPROLOL TARTRATE
  12. HYDROXYCHLOR [Concomitant]
     Active Substance: HYDROXYCHLOROQUINE
  13. MULTI-VITAMIN [Concomitant]
     Active Substance: .ALPHA.-TOCOPHEROL ACETATE, DL-\ASCORBIC ACID\CYANOCOBALAMIN\FLUORIDE ION\FOLIC ACID\NIACIN\PYRIDOXINE\RIBOFLAVIN\THIAMINE\VITAMIN A\VITAMIN D

REACTIONS (2)
  - Eyelid operation [None]
  - Limb discomfort [None]

NARRATIVE: CASE EVENT DATE: 20181005
